FAERS Safety Report 17994553 (Version 4)
Quarter: 2021Q1

REPORT INFORMATION
  Report Type: Other
  Country: US (occurrence: US)
  Receive Date: 20200708
  Receipt Date: 20210312
  Transmission Date: 20210419
  Serious: Yes (Other)
  Sender: FDA-Public Use
  Company Number: US-ROCHE-2638026

PATIENT
  Sex: Female

DRUGS (26)
  1. NAPROSYN [Concomitant]
     Active Substance: NAPROXEN
  2. ACTEMRA [Suspect]
     Active Substance: TOCILIZUMAB
  3. ADVAIR HFA [Concomitant]
     Active Substance: FLUTICASONE PROPIONATE\SALMETEROL XINAFOATE
  4. FISH OIL [Concomitant]
     Active Substance: FISH OIL
  5. METHOTREXATE SODIUM. [Concomitant]
     Active Substance: METHOTREXATE SODIUM
  6. ACTEMRA [Suspect]
     Active Substance: TOCILIZUMAB
     Indication: RHEUMATOID ARTHRITIS
     Dosage: INJECT 162MG SUBCUTANEOUSLY EVERY WEEK
     Route: 058
     Dates: start: 20180125
  7. ACTEMRA [Suspect]
     Active Substance: TOCILIZUMAB
  8. HYDROXYCHLOROQUINE [Concomitant]
     Active Substance: HYDROXYCHLOROQUINE
  9. QUINAPRIL. [Concomitant]
     Active Substance: QUINAPRIL
  10. ASPIRIN. [Concomitant]
     Active Substance: ASPIRIN
  11. BUSPIRONE [Concomitant]
     Active Substance: BUSPIRONE HYDROCHLORIDE
  12. NIFEDIPINE. [Concomitant]
     Active Substance: NIFEDIPINE
  13. SILVER SULFADIAZINE. [Concomitant]
     Active Substance: SILVER SULFADIAZINE
  14. CALCIUM [Concomitant]
     Active Substance: CALCIUM
  15. FOLIC ACID. [Concomitant]
     Active Substance: FOLIC ACID
  16. ACETAMINOPHEN. [Concomitant]
     Active Substance: ACETAMINOPHEN
     Route: 048
  17. ALPRAZOLAM. [Concomitant]
     Active Substance: ALPRAZOLAM
  18. DULOXETINE. [Concomitant]
     Active Substance: DULOXETINE
  19. NASONEX [Concomitant]
     Active Substance: MOMETASONE FUROATE
  20. FUROSEMIDE. [Concomitant]
     Active Substance: FUROSEMIDE
  21. GLIMEPIRIDE. [Concomitant]
     Active Substance: GLIMEPIRIDE
  22. JUBLIA [Concomitant]
     Active Substance: EFINACONAZOLE
  23. TOPIRAMATE. [Concomitant]
     Active Substance: TOPIRAMATE
  24. CEPHALEXIN. [Concomitant]
     Active Substance: CEPHALEXIN
  25. RABEPRAZOLE [Concomitant]
     Active Substance: RABEPRAZOLE
  26. SIMVASTATIN. [Concomitant]
     Active Substance: SIMVASTATIN

REACTIONS (2)
  - Skin ulcer [Unknown]
  - Wound [Unknown]
